FAERS Safety Report 18854703 (Version 2)
Quarter: 2021Q4

REPORT INFORMATION
  Report Type: Spontaneous
  Country: CA (occurrence: CA)
  Receive Date: 20210206
  Receipt Date: 20211027
  Transmission Date: 20220303
  Serious: Yes (Hospitalization, Other)
  Sender: FDA-Public Use
  Company Number: CA-GRANULES-CA-2021GRALIT00089

PATIENT
  Age: 16 Year
  Sex: Female
  Weight: 76 kg

DRUGS (4)
  1. NAPROXEN [Suspect]
     Active Substance: NAPROXEN
     Indication: Product used for unknown indication
     Dosage: 250 TABLETS
     Route: 048
  2. NAPROXEN [Suspect]
     Active Substance: NAPROXEN
     Dosage: 72 TABLETS
     Route: 048
  3. PRAZOSIN [Suspect]
     Active Substance: PRAZOSIN
     Indication: Sleep disorder
     Dosage: 2 TABLETS
     Route: 048
  4. ACETAMINOPHEN [Suspect]
     Active Substance: ACETAMINOPHEN
     Indication: Product used for unknown indication
     Dosage: 325 TABLETS
     Route: 065

REACTIONS (9)
  - Somnolence [Unknown]
  - Vomiting [Unknown]
  - Electrocardiogram QT prolonged [Recovered/Resolved]
  - Metabolic acidosis [Unknown]
  - Renal impairment [Recovered/Resolved]
  - Toxicity to various agents [Unknown]
  - Intentional overdose [Unknown]
  - Sinus tachycardia [Unknown]
  - Altered state of consciousness [Unknown]
